FAERS Safety Report 20701897 (Version 1)
Quarter: 2022Q2

REPORT INFORMATION
  Report Type: Spontaneous
  Country: US (occurrence: None)
  Receive Date: 20220412
  Receipt Date: 20220412
  Transmission Date: 20220721
  Serious: Yes (Hospitalization)
  Sender: FDA-Public Use
  Company Number: None

PATIENT
  Age: 56 Year
  Sex: Female

DRUGS (1)
  1. NIVESTYM [Suspect]
     Active Substance: FILGRASTIM-AAFI
     Indication: Ovarian cancer
     Dosage: 300MCG ?INJECT 1 SYRINGE (300 MCG) UNDER THE SKIN ON DAYS 2,3,4,9, 10 AND 11 OF EACH 21 DAY CHEMO CY
     Route: 058
     Dates: start: 20220316

REACTIONS (1)
  - Abdominal infection [None]

NARRATIVE: CASE EVENT DATE: 20220401
